FAERS Safety Report 13210387 (Version 1)
Quarter: 2017Q1

REPORT INFORMATION
  Report Type: Spontaneous
  Country: HR (occurrence: HR)
  Receive Date: 20170209
  Receipt Date: 20170209
  Transmission Date: 20170428
  Serious: Yes (Other)
  Sender: FDA-Public Use
  Company Number: HR-MYLANLABS-2017M1007504

PATIENT

DRUGS (2)
  1. BRUFEN [Suspect]
     Active Substance: IBUPROFEN
     Dosage: 8 G, UNK
     Route: 048
  2. GLUFORMIN [Suspect]
     Active Substance: METFORMIN HYDROCHLORIDE
     Dosage: 40 DF, TOTAL
     Route: 048

REACTIONS (3)
  - Intentional overdose [Unknown]
  - Suicide attempt [Unknown]
  - No adverse event [Unknown]

NARRATIVE: CASE EVENT DATE: 20161227
